FAERS Safety Report 11860668 (Version 1)
Quarter: 2015Q4

REPORT INFORMATION
  Report Type: Spontaneous
  Country: US (occurrence: US)
  Receive Date: 20151222
  Receipt Date: 20151222
  Transmission Date: 20160305
  Serious: Yes (Hospitalization)
  Sender: FDA-Public Use
  Company Number: US-SMITH AND NEPHEW, INC-2015SMT00641

PATIENT
  Age: 49 Year
  Sex: Female
  Weight: 118.37 kg

DRUGS (1)
  1. REGRANEX [Suspect]
     Active Substance: BECAPLERMIN
     Indication: DIABETIC FOOT
     Dosage: UNK, 1X/DAY
     Route: 061
     Dates: start: 201511, end: 2015

REACTIONS (2)
  - Diabetic foot infection [Unknown]
  - Fatigue [Unknown]

NARRATIVE: CASE EVENT DATE: 2015
